FAERS Safety Report 7750841-8 (Version None)
Quarter: 2011Q3

REPORT INFORMATION
  Report Type: 
  Country: None (occurrence: None)
  Receive Date: 20110914
  Receipt Date: 20110602
  Transmission Date: 20111222
  Serious: Yes (Other)
  Sender: FDA-Public Use
  Company Number: PHHY2011ES48070

PATIENT
  Age: 61 Year
  Sex: Male

DRUGS (4)
  1. VILDAGLIPTIN [Concomitant]
     Dosage: UNK
  2. METFORMIN HCL [Suspect]
  3. GLIMEPIRIDE [Suspect]
  4. REPAGLINIDE [Suspect]

REACTIONS (5)
  - RASH [None]
  - HYPERGLYCAEMIA [None]
  - LYMPHOCYTIC INFILTRATION [None]
  - DRUG HYPERSENSITIVITY [None]
  - RASH MACULO-PAPULAR [None]
